FAERS Safety Report 13119150 (Version 1)
Quarter: 2017Q1

REPORT INFORMATION
  Report Type: Spontaneous
  Country: BR (occurrence: BR)
  Receive Date: 20170116
  Receipt Date: 20170116
  Transmission Date: 20170428
  Serious: Yes (Other)
  Sender: FDA-Public Use
  Company Number: BR-ABBVIE-17P-020-1841827-00

PATIENT
  Age: 73 Year
  Sex: Female
  Weight: 82 kg

DRUGS (4)
  1. CHLORTHALIDONE. [Concomitant]
     Active Substance: CHLORTHALIDONE
     Indication: HYPERTENSION
     Route: 048
  2. CARBAMAZEPINE. [Concomitant]
     Active Substance: CARBAMAZEPINE
     Indication: SEIZURE
     Dosage: 2 TAB AT ONCE IN MORNING/THEN MORE 2 TAB WITH AN INTERVAL OF 8 HOURS
     Route: 048
     Dates: start: 201403
  3. ATENOLOL. [Concomitant]
     Active Substance: ATENOLOL
     Indication: HYPERTENSION
     Route: 048
  4. DEPAKOTE ER [Suspect]
     Active Substance: DIVALPROEX SODIUM
     Indication: SEIZURE
     Route: 048
     Dates: start: 201606

REACTIONS (5)
  - Product difficult to swallow [Not Recovered/Not Resolved]
  - Refusal of treatment by patient [Not Recovered/Not Resolved]
  - Wrong technique in product usage process [Unknown]
  - Dementia [Not Recovered/Not Resolved]
  - Drug dose omission [Not Recovered/Not Resolved]

NARRATIVE: CASE EVENT DATE: 201609
